FAERS Safety Report 13607131 (Version 1)
Quarter: 2017Q2

REPORT INFORMATION
  Report Type: Report from Study
  Country: US (occurrence: US)
  Receive Date: 20170602
  Receipt Date: 20170602
  Transmission Date: 20170830
  Serious: Yes (Other)
  Sender: FDA-Public Use
  Company Number: US-AMGEN-USASL2017081797

PATIENT
  Age: 72 Year
  Sex: Female

DRUGS (5)
  1. CALCIUM [Concomitant]
     Active Substance: CALCIUM
     Dosage: 1200 MG, QD
  2. VITAMIN D3 [Concomitant]
     Active Substance: CHOLECALCIFEROL
     Dosage: AT LEAST 800, QD
  3. PROLIA [Suspect]
     Active Substance: DENOSUMAB
     Indication: CERVICAL VERTEBRAL FRACTURE
  4. PROLIA [Suspect]
     Active Substance: DENOSUMAB
     Indication: BONE DENSITY ABNORMAL
  5. PROLIA [Suspect]
     Active Substance: DENOSUMAB
     Indication: OSTEOPOROSIS
     Dosage: 60 MG, Q6MO
     Route: 058

REACTIONS (10)
  - Off label use [Unknown]
  - Intervertebral disc displacement [Unknown]
  - Cervical vertebral fracture [Unknown]
  - Fall [Unknown]
  - Renal cyst haemorrhage [Unknown]
  - Thoracic vertebral fracture [Unknown]
  - Vertebral osteophyte [Unknown]
  - Spinal osteoarthritis [Unknown]
  - Aortic calcification [Unknown]
  - Thyroid calcification [Unknown]

NARRATIVE: CASE EVENT DATE: 20170512
